FAERS Safety Report 9120751 (Version 5)
Quarter: 2013Q2

REPORT INFORMATION
  Report Type: Report from Study
  Country: CA (occurrence: CA)
  Receive Date: 20130226
  Receipt Date: 20130603
  Transmission Date: 20140414
  Serious: Yes (Other)
  Sender: FDA-Public Use
  Company Number: CA-ROCHE-1195045

PATIENT
  Sex: Male
  Weight: 75 kg

DRUGS (3)
  1. AVASTIN [Suspect]
     Indication: NON-SMALL CELL LUNG CANCER
     Route: 042
     Dates: start: 20121130
  2. AVASTIN [Suspect]
     Dosage: DOSE REDUCED
     Route: 042
     Dates: start: 20130410, end: 20130501
  3. ALIMTA [Concomitant]

REACTIONS (3)
  - Weight increased [Recovered/Resolved]
  - No therapeutic response [Unknown]
  - Malaise [Unknown]
